FAERS Safety Report 4337817-8 (Version None)
Quarter: 2004Q2

REPORT INFORMATION
  Report Type: 
  Country: None (occurrence: None)
  Receive Date: 20040413
  Receipt Date: 20031215
  Transmission Date: 20050107
  Serious: Yes (Other)
  Sender: FDA-Public Use
  Company Number: PHNU2003DE04419

PATIENT
  Sex: Male

DRUGS (1)
  1. SANDIMMUNE [Suspect]
     Indication: PSORIASIS
     Route: 048

REACTIONS (3)
  - COELIAC DISEASE [None]
  - DIABETES MELLITUS [None]
  - ILL-DEFINED DISORDER [None]
